FAERS Safety Report 16950360 (Version 2)
Quarter: 2020Q1

REPORT INFORMATION
  Report Type: Spontaneous
  Country: US (occurrence: US)
  Receive Date: 20191023
  Receipt Date: 20200109
  Transmission Date: 20200409
  Serious: No
  Sender: FDA-Public Use
  Company Number: US-BEH-2019108380

PATIENT
  Age: 9 Year
  Sex: Female

DRUGS (3)
  1. HIZENTRA [Suspect]
     Active Substance: HUMAN IMMUNOGLOBULIN G
     Dosage: 6 GRAM, QW
     Route: 058
     Dates: start: 20191023
  2. HIZENTRA [Suspect]
     Active Substance: HUMAN IMMUNOGLOBULIN G
     Dosage: 4 GRAM, QW
     Route: 058
     Dates: start: 20180331
  3. HIZENTRA [Suspect]
     Active Substance: HUMAN IMMUNOGLOBULIN G
     Indication: HYPOGAMMAGLOBULINAEMIA
     Dosage: 1 GRAM, QW
     Route: 058
     Dates: start: 20180331

REACTIONS (2)
  - Ear infection [Unknown]
  - Urinary tract infection [Unknown]
